FAERS Safety Report 8000584-0 (Version None)
Quarter: 2011Q4

REPORT INFORMATION
  Report Type: 
  Country: None (occurrence: None)
  Receive Date: 20111123
  Receipt Date: 20111108
  Transmission Date: 20120403
  Serious: No
  Sender: FDA-Public Use
  Company Number: 336693

PATIENT
  Age: 33 Year
  Sex: Female
  Weight: 96.6 kg

DRUGS (4)
  1. SINGULAIR [Concomitant]
  2. PRILOSEC [Concomitant]
  3. METFORMIN HCL [Concomitant]
  4. VICTOZA [Suspect]
     Indication: TYPE 2 DIABETES MELLITUS
     Dosage: 0.6 MG, QD, SUBCUTANEOUS
     Route: 058
     Dates: start: 20110829, end: 20110912

REACTIONS (3)
  - DEHYDRATION [None]
  - VOMITING [None]
  - NAUSEA [None]
